FAERS Safety Report 12939491 (Version 1)
Quarter: 2016Q4

REPORT INFORMATION
  Report Type: Spontaneous
  Country: FR (occurrence: FR)
  Receive Date: 20161115
  Receipt Date: 20161115
  Transmission Date: 20170207
  Serious: Yes (Hospitalization)
  Sender: FDA-Public Use
  Company Number: FR-PFIZER INC-2004198610FR

PATIENT
  Age: 78 Year
  Sex: Male

DRUGS (2)
  1. ESTRACYT [Suspect]
     Active Substance: ESTRAMUSTINE PHOSPHATE SODIUM
     Indication: PROSTATE CANCER
     Dosage: 3 CAPSULES PER DAY, 10 DAYS BY CYCLE
     Route: 048
     Dates: start: 20030715, end: 20031013
  2. TAXOTERE [Suspect]
     Active Substance: DOCETAXEL
     Indication: PROSTATE CANCER
     Dosage: 35 MG/M2, CYCLIC, ON DAY 1 AND 8
     Route: 042
     Dates: start: 20030715, end: 20031013

REACTIONS (1)
  - Interstitial lung disease [Recovered/Resolved]

NARRATIVE: CASE EVENT DATE: 20031013
